FAERS Safety Report 14859262 (Version 1)
Quarter: 2018Q2

REPORT INFORMATION
  Report Type: Spontaneous
  Country: US (occurrence: US)
  Receive Date: 20180508
  Receipt Date: 20180508
  Transmission Date: 20180711
  Serious: No
  Sender: FDA-Public Use
  Company Number: US-BAYER-2018-086324

PATIENT

DRUGS (1)
  1. CLIMARA PRO [Suspect]
     Active Substance: ESTRADIOL\LEVONORGESTREL
     Route: 062

REACTIONS (7)
  - Device breakage [None]
  - Device material issue [None]
  - Patient dissatisfaction with device [None]
  - Product physical issue [None]
  - Product adhesion issue [None]
  - Drug dose omission [None]
  - Wrong technique in product usage process [None]
